FAERS Safety Report 5747575-8 (Version None)
Quarter: 2008Q2

REPORT INFORMATION
  Report Type: 
  Country: None (occurrence: None)
  Receive Date: 20080523
  Receipt Date: 20080515
  Transmission Date: 20081010
  Serious: Yes (Other)
  Sender: FDA-Public Use
  Company Number: FR-AVENTIS-200811534FR

PATIENT
  Age: 45 Year
  Sex: Female

DRUGS (1)
  1. LOVENOX [Suspect]
     Route: 058
     Dates: start: 20080330, end: 20080420

REACTIONS (5)
  - ECZEMA [None]
  - INJECTION SITE ERYTHEMA [None]
  - INJECTION SITE PRURITUS [None]
  - INJECTION SITE REACTION [None]
  - PRURITUS [None]
